FAERS Safety Report 8960735 (Version 2)
Quarter: 2013Q1

REPORT INFORMATION
  Report Type: Spontaneous
  Country: US (occurrence: US)
  Receive Date: 20121212
  Receipt Date: 20130114
  Transmission Date: 20140127
  Serious: Yes (Other)
  Sender: FDA-Public Use
  Company Number: US-PFIZER INC-2012309976

PATIENT
  Age: 62 Year
  Sex: Male
  Weight: 76.19 kg

DRUGS (1)
  1. MYCOBUTIN [Suspect]
     Indication: MYCOBACTERIUM AVIUM COMPLEX INFECTION
     Dosage: 150 MG, 2X/DAY
     Dates: start: 201102

REACTIONS (1)
  - Myocardial infarction [Recovered/Resolved]
